FAERS Safety Report 16711767 (Version 2)
Quarter: 2019Q3

REPORT INFORMATION
  Report Type: Spontaneous
  Country: US (occurrence: US)
  Receive Date: 20190816
  Receipt Date: 20190819
  Transmission Date: 20191004
  Serious: No
  Sender: FDA-Public Use
  Company Number: US-SA-2019SA225561

PATIENT
  Age: 40 Year
  Sex: Female

DRUGS (1)
  1. KEVZARA [Suspect]
     Active Substance: SARILUMAB
     Indication: RHEUMATOID ARTHRITIS
     Dosage: 200 MG, QOW
     Route: 058
     Dates: start: 20190505

REACTIONS (6)
  - Pain [Unknown]
  - Urinary tract infection [Unknown]
  - Pyrexia [Unknown]
  - Chills [Unknown]
  - Nasopharyngitis [Unknown]
  - Headache [Unknown]
